FAERS Safety Report 20264811 (Version 1)
Quarter: 2021Q4

REPORT INFORMATION
  Report Type: Spontaneous
  Country: US (occurrence: US)
  Receive Date: 20211231
  Receipt Date: 20211231
  Transmission Date: 20220303
  Serious: No
  Sender: FDA-Public Use
  Company Number: US-PFIZER INC-202101316192

PATIENT
  Age: 47 Year
  Sex: Female

DRUGS (1)
  1. XELJANZ [Suspect]
     Active Substance: TOFACITINIB CITRATE
     Indication: Colitis ulcerative
     Dosage: 10 MG, 2X/DAY
     Route: 048
     Dates: start: 20210609

REACTIONS (6)
  - Circumstance or information capable of leading to medication error [Unknown]
  - Sinus congestion [Unknown]
  - Paranasal sinus hypersecretion [Unknown]
  - Chills [Recovered/Resolved]
  - Constipation [Unknown]
  - Secretion discharge [Unknown]
